FAERS Safety Report 7819776-6 (Version None)
Quarter: 2011Q4

REPORT INFORMATION
  Report Type: 
  Country: None (occurrence: None)
  Receive Date: 20111018
  Receipt Date: 20110729
  Transmission Date: 20120403
  Serious: No
  Sender: FDA-Public Use
  Company Number: US-ASTRAZENECA-2011SE45970

PATIENT
  Age: 40 Year
  Sex: Female

DRUGS (2)
  1. ALBUTEROL [Concomitant]
  2. SYMBICORT [Suspect]
     Dosage: 80/4.5 MICROGRAMS DAILY
     Route: 055

REACTIONS (9)
  - DYSPNOEA [None]
  - CHEST PAIN [None]
  - CHRONIC OBSTRUCTIVE PULMONARY DISEASE [None]
  - CHEST DISCOMFORT [None]
  - DRUG DOSE OMISSION [None]
  - MUSCLE RUPTURE [None]
  - EMPHYSEMA [None]
  - PULMONARY MASS [None]
  - TEMPERATURE INTOLERANCE [None]
